FAERS Safety Report 6963194-X (Version None)
Quarter: 2010Q3

REPORT INFORMATION
  Report Type: 
  Country: None (occurrence: None)
  Receive Date: 20100902
  Receipt Date: 20100825
  Transmission Date: 20110219
  Serious: Yes (Other)
  Sender: FDA-Public Use
  Company Number: US-ABBOTT-10P-163-0666064-00

PATIENT
  Sex: Female
  Weight: 67.192 kg

DRUGS (9)
  1. HUMIRA [Suspect]
     Indication: RHEUMATOID ARTHRITIS
     Dates: start: 20070101
  2. LANTUS [Concomitant]
     Indication: DIABETES MELLITUS
  3. HUMALOG [Concomitant]
     Indication: DIABETES MELLITUS
  4. NAPROXEN [Concomitant]
     Indication: PAIN
  5. SKELAXIN [Concomitant]
     Indication: PAIN
  6. PROMETHAZINE [Concomitant]
     Indication: NAUSEA
  7. METHYLPREDNISOLONE [Concomitant]
     Indication: PAIN
  8. SULFASAZINE [Concomitant]
     Indication: RHEUMATOID ARTHRITIS
  9. GABAPENTIN [Concomitant]
     Indication: DIABETIC NEUROPATHY

REACTIONS (3)
  - ARTHRALGIA [None]
  - JOINT EFFUSION [None]
  - JOINT RANGE OF MOTION DECREASED [None]
